FAERS Safety Report 5411214-6 (Version None)
Quarter: 2007Q3

REPORT INFORMATION
  Report Type: 
  Country: None (occurrence: None)
  Receive Date: 20070810
  Receipt Date: 20070802
  Transmission Date: 20080115
  Serious: Yes (Hospitalization)
  Sender: FDA-Public Use
  Company Number: B0478700A

PATIENT
  Age: 29 Year
  Sex: Female

DRUGS (1)
  1. LAMICTAL [Suspect]
     Indication: EPILEPSY
     Dosage: 500MG PER DAY
     Route: 048

REACTIONS (6)
  - BALANCE DISORDER [None]
  - NEURITIS [None]
  - OVERDOSE [None]
  - VERTIGO [None]
  - VOMITING [None]
  - WEIGHT DECREASED [None]
